FAERS Safety Report 10359872 (Version 1)
Quarter: 2014Q3

REPORT INFORMATION
  Report Type: Spontaneous
  Country: FR (occurrence: None)
  Receive Date: 20140730
  Receipt Date: 20140730
  Transmission Date: 20150326
  Serious: Yes (Disabling)
  Sender: FDA-Public Use
  Company Number: 2455137

PATIENT
  Age: 10 Year
  Sex: Female

DRUGS (12)
  1. EMEND [Suspect]
     Active Substance: APREPITANT
     Indication: VOMITING
     Route: 048
  2. ZOPHREN [Concomitant]
     Active Substance: ONDANSETRON
  3. PLITICAN [Concomitant]
     Active Substance: ALIZAPRIDE HYDROCHLORIDE
  4. BACTRIM [Concomitant]
     Active Substance: SULFAMETHOXAZOLE\TRIMETHOPRIM
  5. PARACETAMOL [Concomitant]
     Active Substance: ACETAMINOPHEN
  6. DEXAMETHASONE. [Concomitant]
     Active Substance: DEXAMETHASONE
  7. LAROXYL [Concomitant]
     Active Substance: AMITRIPTYLINE
  8. VOGALENE [Concomitant]
     Active Substance: METOPIMAZINE
  9. ACTINOMYCINES [Concomitant]
     Active Substance: UNSPECIFIED INGREDIENT
  10. DOXORUBICINE [Concomitant]
     Active Substance: DOXORUBICIN
  11. TAZOCILLINE [Concomitant]
     Active Substance: PIPERACILLIN SODIUM\TAZOBACTAM SODIUM
  12. VINCRISTINE SULFATE. [Suspect]
     Active Substance: VINCRISTINE SULFATE
     Indication: CHEMOTHERAPY
     Route: 042
     Dates: start: 20140221, end: 20140509

REACTIONS (6)
  - Drug interaction [None]
  - Neuropathy peripheral [None]
  - Neurotoxicity [None]
  - Febrile bone marrow aplasia [None]
  - Vomiting [None]
  - Diarrhoea [None]
